FAERS Safety Report 8546650-2 (Version None)
Quarter: 2012Q3

REPORT INFORMATION
  Report Type: 
  Country: None (occurrence: None)
  Receive Date: 20120727
  Receipt Date: 20120123
  Transmission Date: 20120928
  Serious: No
  Sender: FDA-Public Use
  Company Number: US-ASTRAZENECA-2012SE04650

PATIENT
  Age: 27 Year
  Sex: Female
  Weight: 79.4 kg

DRUGS (9)
  1. SEROQUEL XR [Suspect]
     Route: 048
  2. SEROQUEL XR [Suspect]
     Indication: DEPRESSION
     Route: 048
     Dates: start: 20070101, end: 20100101
  3. SEROQUEL XR [Suspect]
     Indication: SCHIZOPHRENIA
     Route: 048
     Dates: start: 20070101, end: 20100101
  4. SEROQUEL XR [Suspect]
     Indication: ANXIETY
     Route: 048
     Dates: start: 20070101, end: 20100101
  5. SEROQUEL XR [Suspect]
     Indication: SLEEP DISORDER
     Route: 048
     Dates: start: 20070101, end: 20100101
  6. SEROQUEL XR [Suspect]
     Route: 048
  7. SEROQUEL XR [Suspect]
     Route: 048
  8. SEROQUEL XR [Suspect]
     Route: 048
  9. BIRTH CONTROL MEDICATION [Concomitant]

REACTIONS (3)
  - INSOMNIA [None]
  - DRUG PRESCRIBING ERROR [None]
  - DRUG DOSE OMISSION [None]
